FAERS Safety Report 18338086 (Version 1)
Quarter: 2020Q4

REPORT INFORMATION
  Report Type: Spontaneous
  Country: US (occurrence: US)
  Receive Date: 20201001
  Receipt Date: 20201001
  Transmission Date: 20210113
  Serious: Yes (Hospitalization)
  Sender: FDA-Public Use
  Company Number: None

PATIENT
  Age: 78 Year
  Sex: Male
  Weight: 105 kg

DRUGS (1)
  1. DACARBAZINE. [Suspect]
     Active Substance: DACARBAZINE
     Dosage: DOSE OR AMOUNT 1000 MG/M2 MILLIGRAM(S)/ SQ METER
     Dates: start: 20201001

REACTIONS (2)
  - Hypotension [None]
  - Pain in extremity [None]

NARRATIVE: CASE EVENT DATE: 20201001
